FAERS Safety Report 6442934-2 (Version None)
Quarter: 2009Q4

REPORT INFORMATION
  Report Type: 
  Country: None (occurrence: None)
  Receive Date: 20091117
  Receipt Date: 20091110
  Transmission Date: 20100525
  Serious: Yes (Other)
  Sender: FDA-Public Use
  Company Number: US-BAYER-200933261NA

PATIENT
  Age: 49 Year
  Sex: Male

DRUGS (2)
  1. ULTRAVIST 300 [Suspect]
     Indication: COMPUTERISED TOMOGRAM ABDOMEN
     Dosage: TOTAL DAILY DOSE: 80 ML
     Route: 042
     Dates: start: 20090914, end: 20090914
  2. READI-CAT 2 [Concomitant]
     Indication: COMPUTERISED TOMOGRAM ABDOMEN
     Route: 048
     Dates: start: 20090914, end: 20090914

REACTIONS (3)
  - LIP SWELLING [None]
  - OROPHARYNGEAL PAIN [None]
  - URTICARIA [None]
